FAERS Safety Report 22996171 (Version 3)
Quarter: 2023Q4

REPORT INFORMATION
  Report Type: Report from Study
  Country: DE (occurrence: DE)
  Receive Date: 20230927
  Receipt Date: 20231002
  Transmission Date: 20240109
  Serious: Yes (Hospitalization, Other)
  Sender: FDA-Public Use
  Company Number: DE-ABBVIE-5424514

PATIENT
  Age: 54 Year
  Sex: Female

DRUGS (13)
  1. CARBIDOPA\LEVODOPA [Suspect]
     Active Substance: CARBIDOPA\LEVODOPA
     Indication: Parkinson^s disease
     Route: 050
     Dates: start: 20220221
  2. CARBIDOPA\LEVODOPA [Suspect]
     Active Substance: CARBIDOPA\LEVODOPA
     Dosage: DOSE INCREASED, MD 7.0ML, CRD 1.9ML/H, ED 1.0ML
     Route: 050
  3. CYMBALTA [Concomitant]
     Active Substance: DULOXETINE HYDROCHLORIDE
     Indication: Product used for unknown indication
     Dates: start: 20230513
  4. CALCIUM [Concomitant]
     Active Substance: CALCIUM
     Indication: Calcium deficiency
  5. VITAMIN B12 [Concomitant]
     Active Substance: CYANOCOBALAMIN
     Indication: Vitamin B12 decreased
     Dosage: 1000 UG
     Route: 058
  6. Vigantol [Concomitant]
     Indication: Vitamin D deficiency
  7. AMOXICILLIN\CLAVULANATE POTASSIUM [Concomitant]
     Active Substance: AMOXICILLIN\CLAVULANATE POTASSIUM
     Indication: Product used for unknown indication
     Dates: start: 20230513, end: 20230516
  8. FRESUBIN [Concomitant]
     Active Substance: AMINO ACIDS\DEXTROSE\ELECTROLYTES NOS\SOYBEAN OIL\VITAMINS
     Indication: Underweight
  9. POLYETHYLENE GLYCOLS [Concomitant]
     Active Substance: POLYETHYLENE GLYCOLS
     Indication: Product used for unknown indication
  10. QUETIAPINE [Concomitant]
     Active Substance: QUETIAPINE
     Indication: Product used for unknown indication
     Dosage: HALF PER DAY
  11. DULOXETINE [Concomitant]
     Active Substance: DULOXETINE
     Indication: Depressed mood
  12. BENSERAZIDE HYDROCHLORIDE\LEVODOPA [Concomitant]
     Active Substance: BENSERAZIDE HYDROCHLORIDE\LEVODOPA
     Indication: Product used for unknown indication
     Dosage: HALF AS NEEDED
     Dates: start: 20230513
  13. TRAVORAL [Concomitant]
     Indication: Product used for unknown indication
     Dosage: HALF AS NEEDED
     Dates: start: 20230513

REACTIONS (17)
  - Staphylococcal infection [Unknown]
  - Asthenia [Unknown]
  - Muscle spasms [Unknown]
  - Stoma site discharge [Unknown]
  - Device dislocation [Recovered/Resolved]
  - Tremor [Unknown]
  - Hallucination, visual [Unknown]
  - Mobility decreased [Unknown]
  - Balance disorder [Unknown]
  - Stoma site hypergranulation [Unknown]
  - Depressed mood [Unknown]
  - Thinking abnormal [Unknown]
  - Neurological rehabilitation [Recovered/Resolved]
  - On and off phenomenon [Unknown]
  - Abdominal pain lower [Unknown]
  - Pain [Unknown]
  - Urinary retention [Unknown]

NARRATIVE: CASE EVENT DATE: 20230426
